FAERS Safety Report 4863048-9 (Version None)
Quarter: 2005Q4

REPORT INFORMATION
  Report Type: 
  Country: None (occurrence: None)
  Receive Date: 20051221
  Receipt Date: 20051208
  Transmission Date: 20060501
  Serious: Yes (Hospitalization)
  Sender: FDA-Public Use
  Company Number: US-MERCK-0512USA01494

PATIENT
  Age: 62 Year
  Sex: Female
  Weight: 86 kg

DRUGS (2)
  1. VIOXX [Suspect]
     Indication: ARTHRITIS
     Route: 048
     Dates: start: 19991108, end: 20001211
  2. ZIAC [Concomitant]
     Route: 065

REACTIONS (2)
  - ISCHAEMIC STROKE [None]
  - KNEE OPERATION [None]
